APPROVED DRUG PRODUCT: ONDANSETRON HYDROCHLORIDE
Active Ingredient: ONDANSETRON HYDROCHLORIDE
Strength: EQ 2MG BASE/ML
Dosage Form/Route: INJECTABLE;INJECTION
Application: A090648 | Product #001 | TE Code: AP
Applicant: GLAND PHARMA LTD
Approved: Jun 15, 2012 | RLD: No | RS: Yes | Type: RX